FAERS Safety Report 6933567-X (Version None)
Quarter: 2010Q3

REPORT INFORMATION
  Report Type: 
  Country: None (occurrence: None)
  Receive Date: 20100820
  Receipt Date: 20100810
  Transmission Date: 20110219
  Serious: Yes (Life-Threatening, Hospitalization, Disabling)
  Sender: FDA-Public Use
  Company Number: FR-PFIZER INC-2010070265

PATIENT
  Age: 85 Year
  Sex: Female
  Weight: 40 kg

DRUGS (6)
  1. SALAZOPYRIN [Suspect]
     Indication: COLITIS
     Dosage: 500 MG, 2X/DAY
     Route: 048
     Dates: end: 20100603
  2. ACETAMINOPHEN [Concomitant]
     Dosage: UNK
  3. LASIX [Concomitant]
     Dosage: UNK
  4. LEVOTHYROXINE SODIUM [Concomitant]
     Indication: HYPOTHYROIDISM
     Dosage: 50 UG, 1X/DAY
     Route: 048
     Dates: start: 20000101
  5. NEO-MERCAZOLE TAB [Concomitant]
     Indication: HYPOTHYROIDISM
     Dosage: 5 MG, 1X/DAY
     Route: 048
     Dates: start: 20000101
  6. OGASTRO [Concomitant]
     Dosage: UNK

REACTIONS (1)
  - CEREBRAL HAEMATOMA [None]
